FAERS Safety Report 9535177 (Version 1)
Quarter: 2013Q3

REPORT INFORMATION
  Report Type: Spontaneous
  Country: JP (occurrence: JP)
  Receive Date: 20130918
  Receipt Date: 20130918
  Transmission Date: 20140515
  Serious: Yes (Hospitalization)
  Sender: FDA-Public Use
  Company Number: JP-MYLANLABS-2013S1020374

PATIENT
  Age: 3 Decade
  Sex: Male

DRUGS (10)
  1. PAROXETINE [Suspect]
     Indication: SOCIAL PHOBIA
     Dosage: 20MG PER DAY FOR 30 DAYS; THEN INCREASED TO 30MG PER DAY
     Route: 065
  2. PAROXETINE [Suspect]
     Indication: DEPRESSION
     Dosage: 20MG PER DAY FOR 30 DAYS; THEN INCREASED TO 30MG PER DAY
     Route: 065
  3. PAROXETINE [Suspect]
     Indication: SOCIAL PHOBIA
     Dosage: 30MG PER DAY FOR 3 DAYS; THEN REDUCED TO 20MG PER DAY
     Route: 065
  4. PAROXETINE [Suspect]
     Indication: DEPRESSION
     Dosage: 30MG PER DAY FOR 3 DAYS; THEN REDUCED TO 20MG PER DAY
     Route: 065
  5. PAROXETINE [Suspect]
     Indication: SOCIAL PHOBIA
     Dosage: 20MG PER DAY FOR 3 DAYS, THEN WITHDRAWN
     Route: 065
  6. PAROXETINE [Suspect]
     Indication: DEPRESSION
     Dosage: 20MG PER DAY FOR 3 DAYS, THEN WITHDRAWN
     Route: 065
  7. QUETIAPINE [Suspect]
     Indication: SOCIAL PHOBIA
     Route: 065
  8. QUETIAPINE [Suspect]
     Indication: DEPRESSION
     Route: 065
  9. ETIZOLAM [Concomitant]
     Route: 065
  10. TRAZODONE [Concomitant]
     Route: 065

REACTIONS (4)
  - Rhabdomyolysis [Recovered/Resolved]
  - Grand mal convulsion [Recovered/Resolved]
  - Dizziness postural [Unknown]
  - Fall [Unknown]
